FAERS Safety Report 15118729 (Version 1)
Quarter: 2018Q3

REPORT INFORMATION
  Report Type: Spontaneous
  Country: TW (occurrence: TW)
  Receive Date: 20180709
  Receipt Date: 20180709
  Transmission Date: 20181010
  Serious: Yes (Hospitalization)
  Sender: FDA-Public Use
  Company Number: TW-ROCHE-2150728

PATIENT
  Age: 64 Year
  Sex: Female

DRUGS (1)
  1. RITUXIMAB. [Suspect]
     Active Substance: RITUXIMAB
     Indication: VASCULITIS
     Route: 065
     Dates: start: 20180315, end: 20180329

REACTIONS (8)
  - Interstitial lung disease [Unknown]
  - Mouth ulceration [Unknown]
  - Clostridium difficile infection [Unknown]
  - Pneumonia cytomegaloviral [Unknown]
  - Tongue ulceration [Unknown]
  - Pneumocystis jirovecii pneumonia [Unknown]
  - Herpes simplex [Unknown]
  - Genital ulceration [Unknown]

NARRATIVE: CASE EVENT DATE: 201804
